FAERS Safety Report 12480098 (Version 1)
Quarter: 2016Q2

REPORT INFORMATION
  Report Type: Spontaneous
  Country: US (occurrence: None)
  Receive Date: 20160617
  Receipt Date: 20160617
  Transmission Date: 20160815
  Serious: No
  Sender: FDA-Public Use
  Company Number: None

PATIENT
  Sex: Female

DRUGS (2)
  1. METAMUCIL [Suspect]
     Active Substance: PLANTAGO SEED
  2. OMEPRAZOLE. [Suspect]
     Active Substance: OMEPRAZOLE

REACTIONS (5)
  - Abdominal pain [None]
  - Nausea [None]
  - Constipation [None]
  - Dyspepsia [None]
  - Abdominal pain upper [None]
